FAERS Safety Report 8681855 (Version 3)
Quarter: 2013Q1

REPORT INFORMATION
  Report Type: Spontaneous
  Country: US (occurrence: US)
  Receive Date: 20120725
  Receipt Date: 20130116
  Transmission Date: 20140127
  Serious: Yes (Hospitalization)
  Sender: FDA-Public Use
  Company Number: US-ROCHE-1090696

PATIENT
  Sex: Male

DRUGS (1)
  1. CELLCEPT [Suspect]
     Indication: LUNG TRANSPLANT
     Route: 048

REACTIONS (3)
  - Small intestinal obstruction [Unknown]
  - Adhesion [Unknown]
  - Cystic fibrosis [Unknown]
